FAERS Safety Report 9301342 (Version 2)
Quarter: 2013Q3

REPORT INFORMATION
  Report Type: Report from Study
  Country: DE (occurrence: DE)
  Receive Date: 20130521
  Receipt Date: 20130815
  Transmission Date: 20140515
  Serious: Yes (Hospitalization)
  Sender: FDA-Public Use
  Company Number: DE-ABBOTT-13P-062-1092714-00

PATIENT
  Age: 59 Year
  Sex: Male

DRUGS (2)
  1. HUMIRA [Suspect]
     Indication: CROHN^S DISEASE
     Route: 058
     Dates: start: 20121102, end: 20130215
  2. CORTISONE [Concomitant]
     Indication: CROHN^S DISEASE

REACTIONS (4)
  - Intestinal fistula [Not Recovered/Not Resolved]
  - Abscess intestinal [Not Recovered/Not Resolved]
  - General physical health deterioration [Not Recovered/Not Resolved]
  - Central venous catheterisation [Not Recovered/Not Resolved]
